FAERS Safety Report 19563886 (Version 1)
Quarter: 2021Q3

REPORT INFORMATION
  Report Type: Spontaneous
  Country: CN (occurrence: CN)
  Receive Date: 20210714
  Receipt Date: 20210714
  Transmission Date: 20211014
  Serious: Yes (Hospitalization)
  Sender: FDA-Public Use
  Company Number: CN-PFIZER INC-2021807945

PATIENT
  Age: 26 Year
  Sex: Female
  Weight: 52.5 kg

DRUGS (8)
  1. TAZOCIN [Suspect]
     Active Substance: PIPERACILLIN SODIUM\TAZOBACTAM SODIUM
     Indication: RESPIRATORY FAILURE
  2. ZYVOX [Suspect]
     Active Substance: LINEZOLID
     Indication: RESPIRATORY FAILURE
  3. ZYVOX [Suspect]
     Active Substance: LINEZOLID
     Indication: CARDIAC FAILURE
     Dosage: 0.6 G, 2X/DAY
     Route: 048
     Dates: start: 20210423, end: 20210426
  4. TAZOCIN [Suspect]
     Active Substance: PIPERACILLIN SODIUM\TAZOBACTAM SODIUM
     Indication: CARDIAC VALVE DISEASE
  5. TAZOCIN [Suspect]
     Active Substance: PIPERACILLIN SODIUM\TAZOBACTAM SODIUM
     Indication: CARDIOGENIC SHOCK
  6. ZYVOX [Suspect]
     Active Substance: LINEZOLID
     Indication: CARDIOGENIC SHOCK
  7. ZYVOX [Suspect]
     Active Substance: LINEZOLID
     Indication: CARDIAC VALVE DISEASE
  8. TAZOCIN [Suspect]
     Active Substance: PIPERACILLIN SODIUM\TAZOBACTAM SODIUM
     Indication: CARDIAC FAILURE
     Dosage: 2.25 G, 2X/DAY
     Route: 041
     Dates: start: 20210430, end: 20210510

REACTIONS (2)
  - Eosinophilia [Recovering/Resolving]
  - White blood cell count increased [Recovering/Resolving]

NARRATIVE: CASE EVENT DATE: 20210509
